FAERS Safety Report 5848677-8 (Version None)
Quarter: 2008Q3

REPORT INFORMATION
  Report Type: 
  Country: None (occurrence: None)
  Receive Date: 20080814
  Receipt Date: 20080731
  Transmission Date: 20090109
  Serious: Yes (Other)
  Sender: FDA-Public Use
  Company Number: 234212J08USA

PATIENT
  Age: 57 Year
  Sex: Female
  Weight: 80.2867 kg

DRUGS (11)
  1. REBIF [Suspect]
     Indication: MULTIPLE SCLEROSIS
     Dosage: 44 MCG, 3 IN 1 WEEKS, SUBCUTANEOUS; 22 MCG, 3 IN 1 WEEKS, SUBCUTANEOUS
     Route: 058
     Dates: start: 20030731, end: 20080530
  2. REBIF [Suspect]
     Indication: MULTIPLE SCLEROSIS
     Dosage: 44 MCG, 3 IN 1 WEEKS, SUBCUTANEOUS; 22 MCG, 3 IN 1 WEEKS, SUBCUTANEOUS
     Route: 058
     Dates: start: 20080531
  3. MILK THISTLE (VITAMINS) [Concomitant]
  4. NEXIUM [Concomitant]
  5. DIOVAN HCT(CO-DIOVAN) [Concomitant]
  6. DYNACIRC [Concomitant]
  7. METOPROLOL (METOPROLOL /00376901/) [Concomitant]
  8. BACLOFEN [Concomitant]
  9. PARLODEL [Concomitant]
  10. ESTINYL [Concomitant]
  11. VITMAIN D3 (COLECALCIFEROL) [Concomitant]

REACTIONS (5)
  - DIABETES MELLITUS [None]
  - GASTROINTESTINAL INFECTION [None]
  - GLYCOSYLATED HAEMOGLOBIN INCREASED [None]
  - HEPATIC PAIN [None]
  - HEPATIC STEATOSIS [None]
